FAERS Safety Report 6838992-3 (Version None)
Quarter: 2010Q3

REPORT INFORMATION
  Report Type: 
  Country: None (occurrence: None)
  Receive Date: 20100713
  Receipt Date: 20071006
  Transmission Date: 20110219
  Serious: No
  Sender: FDA-Public Use
  Company Number: US-PFIZER INC-2007039864

PATIENT
  Sex: Female
  Weight: 51.7 kg

DRUGS (3)
  1. CHANTIX [Suspect]
     Indication: SMOKING CESSATION THERAPY
     Route: 048
     Dates: start: 20070508
  2. CHANTIX [Interacting]
     Route: 048
     Dates: start: 20070501
  3. CABERGOLINE [Interacting]
     Indication: PITUITARY TUMOUR
     Dosage: 2 EVERY 1 WEEKS
     Route: 048

REACTIONS (3)
  - ANXIETY [None]
  - DRUG INTERACTION [None]
  - NAUSEA [None]
